FAERS Safety Report 16116765 (Version 1)
Quarter: 2019Q1

REPORT INFORMATION
  Report Type: Spontaneous
  Country: TN (occurrence: TN)
  Receive Date: 20190326
  Receipt Date: 20190326
  Transmission Date: 20190418
  Serious: Yes (Other)
  Sender: FDA-Public Use
  Company Number: TN-LUPIN PHARMACEUTICALS INC.-2019-01747

PATIENT
  Age: 32 Year
  Sex: Female

DRUGS (3)
  1. PIROXICAM. [Suspect]
     Active Substance: PIROXICAM
     Indication: PRODUCT USED FOR UNKNOWN INDICATION
     Dosage: 5 MILLIGRAM
     Route: 048
  2. MELOXICAM. [Suspect]
     Active Substance: MELOXICAM
     Indication: PRODUCT USED FOR UNKNOWN INDICATION
     Dosage: 5 MILLIGRAM, TID (ON FIRST DAY)
     Route: 048
  3. MELOXICAM. [Suspect]
     Active Substance: MELOXICAM
     Dosage: 15 MILLIGRAM, QD (ON SECOND AND THIRD DAY)
     Route: 048

REACTIONS (2)
  - Therapeutic product cross-reactivity [Recovered/Resolved]
  - Fixed eruption [Recovered/Resolved]
